FAERS Safety Report 8697336 (Version 2)
Quarter: 2013Q4

REPORT INFORMATION
  Report Type: Report from Study
  Country: JP (occurrence: JP)
  Receive Date: 20120801
  Receipt Date: 20131108
  Transmission Date: 20140711
  Serious: Yes (Other)
  Sender: FDA-Public Use
  Company Number: JP-009507513-1208JPN000325

PATIENT
  Age: 41 Year
  Sex: Female
  Weight: 50 kg

DRUGS (10)
  1. REBETOL [Suspect]
     Indication: HEPATITIS C
     Dosage: 200 MG IN THE MORNING AND 400 MG IN THE EVENING
     Route: 048
     Dates: start: 20100916, end: 20101224
  2. FERON [Suspect]
     Indication: HEPATITIS C
     Route: 041
     Dates: start: 20100916, end: 20100921
  3. FERON [Suspect]
     Route: 041
     Dates: start: 20100924, end: 20101016
  4. FERON [Suspect]
     Route: 041
     Dates: start: 20101018, end: 20101224
  5. PEGASYS [Suspect]
     Indication: HEPATITIS C
     Dosage: 180 QW
     Route: 058
     Dates: start: 20101227
  6. COPEGUS [Suspect]
     Indication: HEPATITIS C
     Dosage: 400 MG IN THE MORNING AND 200 MG IN THE EVENING
     Route: 048
     Dates: start: 20101227
  7. SINGULAIR TABLETS 10MG [Concomitant]
     Dosage: THE DIVIDED DOSE FREQUENCY IS UNCERTAIN.
     Route: 048
     Dates: start: 20101101, end: 20110425
  8. ADOAIR [Concomitant]
     Indication: ASTHMA
     Route: 055
     Dates: start: 20101129, end: 20110130
  9. ONEALFA [Concomitant]
     Indication: HEPATITIS C
     Dosage: 0.5 THE DIVIDED DOSE FREQUENCY IS UNCERTAIN.
     Route: 048
     Dates: start: 20101227, end: 20111205
  10. ALFAROL [Concomitant]
     Indication: HEPATITIS C
     Dosage: 1, THE DIVIDED DOSE FREQUENCY IS UNCERTAIN.
     Route: 048
     Dates: start: 20111206

REACTIONS (9)
  - Pyrexia [Recovering/Resolving]
  - Neutrophil count decreased [Recovered/Resolved]
  - Headache [Recovering/Resolving]
  - Malaise [Recovering/Resolving]
  - White blood cell count decreased [Recovered/Resolved]
  - Pyrexia [Not Recovered/Not Resolved]
  - Diarrhoea [Not Recovered/Not Resolved]
  - Alopecia [Not Recovered/Not Resolved]
  - Pancytopenia [Recovered/Resolved]
